FAERS Safety Report 18883097 (Version 1)
Quarter: 2021Q1

REPORT INFORMATION
  Report Type: Spontaneous
  Country: JP (occurrence: JP)
  Receive Date: 20210212
  Receipt Date: 20210212
  Transmission Date: 20210420
  Serious: Yes (Death, Other)
  Sender: FDA-Public Use
  Company Number: JP-ASTELLAS-2021US004837

PATIENT
  Age: 78 Year
  Sex: Male

DRUGS (2)
  1. AMBISOME [Suspect]
     Active Substance: AMPHOTERICIN B
     Indication: BRONCHOPULMONARY ASPERGILLOSIS
     Dosage: 100 MG (2 VIALS/DAY), ONCE DAILY
     Route: 041
  2. AMBISOME [Suspect]
     Active Substance: AMPHOTERICIN B
     Indication: PULMONARY MYCOSIS

REACTIONS (2)
  - Hypokalaemia [Recovered/Resolved]
  - Bronchopulmonary aspergillosis [Fatal]
